FAERS Safety Report 5678366-4 (Version None)
Quarter: 2008Q1

REPORT INFORMATION
  Report Type: 
  Country: None (occurrence: None)
  Receive Date: 20080320
  Receipt Date: 20070709
  Transmission Date: 20080703
  Serious: No
  Sender: FDA-Public Use
  Company Number: 530#6#2007-00045

PATIENT
  Age: 46 Year
  Sex: Male

DRUGS (14)
  1. NEUPRO [Suspect]
     Indication: PARKINSON'S DISEASE
     Dosage: SEE IMAGE
     Route: 062
     Dates: start: 20070228, end: 20070306
  2. NEUPRO [Suspect]
     Indication: PARKINSON'S DISEASE
     Dosage: SEE IMAGE
     Route: 062
     Dates: start: 20070307, end: 20070310
  3. NEUPRO [Suspect]
     Indication: PARKINSON'S DISEASE
     Dosage: SEE IMAGE
     Route: 062
     Dates: start: 20070311, end: 20070410
  4. NEUPRO [Suspect]
     Indication: PARKINSON'S DISEASE
     Dosage: SEE IMAGE
     Route: 062
     Dates: start: 20070411, end: 20070413
  5. NEUPRO [Suspect]
     Indication: PARKINSON'S DISEASE
     Dosage: SEE IMAGE
     Route: 062
     Dates: start: 20070411, end: 20070413
  6. CABERGOLINE [Suspect]
     Indication: PARKINSON'S DISEASE
     Dosage: 1 MG (1 MG 1 IN 1 DAY(S)) ORAL; 2 MG (2 MG 1 IN 1 DAY(S)) ORAL; 4 MG (4 MG 1 IN 1 DAY(S)) ORAL
     Route: 048
     Dates: start: 20070420, end: 20070426
  7. CABERGOLINE [Suspect]
     Indication: PARKINSON'S DISEASE
     Dosage: 1 MG (1 MG 1 IN 1 DAY(S)) ORAL; 2 MG (2 MG 1 IN 1 DAY(S)) ORAL; 4 MG (4 MG 1 IN 1 DAY(S)) ORAL
     Route: 048
     Dates: start: 20070427, end: 20070503
  8. CABERGOLINE [Suspect]
     Indication: PARKINSON'S DISEASE
     Dosage: 1 MG (1 MG 1 IN 1 DAY(S)) ORAL; 2 MG (2 MG 1 IN 1 DAY(S)) ORAL; 4 MG (4 MG 1 IN 1 DAY(S)) ORAL
     Route: 048
     Dates: start: 20070504, end: 20070605
  9. RASAGILINMESILATE 1MG, TABLETS [Suspect]
     Indication: PARKINSON'S DISEASE
     Dosage: 1 MG (1 MG 1 IN 1 DAY(S)) ORAL
     Route: 048
     Dates: start: 20060721
  10. ROPINIROL HCL, DOSE UNKNOWN, TABLETS (ROPINIROLE HYDROCHLORIDE) [Concomitant]
  11. PAROXETINE 20MG, TABLETS (PAROXETINE) [Concomitant]
  12. SIMVASTATIN [Concomitant]
  13. PROPRANOLOL 40MG, TABLETS (PROPRANOLOL) [Concomitant]
  14. FLUOXETINE 20MG, TABLETS (FLUOXETINE) [Concomitant]

REACTIONS (1)
  - SLEEP ATTACKS [None]
